FAERS Safety Report 5815271-4 (Version None)
Quarter: 2008Q3

REPORT INFORMATION
  Report Type: 
  Country: None (occurrence: None)
  Receive Date: 20080718
  Receipt Date: 20080624
  Transmission Date: 20090109
  Serious: No
  Sender: FDA-Public Use
  Company Number: US-BOEHRINGER INGELHEIM GMBH, GERMANY-2008-BP-10202BP

PATIENT
  Sex: Male

DRUGS (8)
  1. ATROVENT HFA [Suspect]
     Indication: CHRONIC OBSTRUCTIVE PULMONARY DISEASE
  2. ATROVENT HFA [Suspect]
     Indication: EMPHYSEMA
  3. ATROVENT HFA [Suspect]
     Indication: DYSPNOEA
  4. ATROVENT HFA [Suspect]
     Indication: BRONCHITIS CHRONIC
  5. ALBUTEROL SULFATE [Concomitant]
     Indication: DYSPNOEA
  6. ADVAIR DISKUS 100/50 [Concomitant]
     Indication: DYSPNOEA
  7. COMBIVENT [Concomitant]
     Indication: DYSPNOEA
  8. SPIRIVA [Concomitant]
     Indication: DYSPNOEA

REACTIONS (1)
  - ADVERSE DRUG REACTION [None]
